FAERS Safety Report 6935739-7 (Version None)
Quarter: 2010Q3

REPORT INFORMATION
  Report Type: 
  Country: None (occurrence: None)
  Receive Date: 20100823
  Receipt Date: 20100819
  Transmission Date: 20110219
  Serious: Yes (Disabling, Other)
  Sender: FDA-Public Use
  Company Number: US-SP-2009-03238

PATIENT
  Sex: Female

DRUGS (1)
  1. THERACYS [Suspect]
     Indication: BLADDER CANCER
     Route: 043
     Dates: start: 20090616, end: 20090707

REACTIONS (8)
  - BLADDER PAIN [None]
  - CYSTITIS [None]
  - DYSURIA [None]
  - MICTURITION URGENCY [None]
  - PELVIC PAIN [None]
  - POLLAKIURIA [None]
  - URETHRAL PAIN [None]
  - WEIGHT DECREASED [None]
